FAERS Safety Report 8567968-3 (Version None)
Quarter: 2012Q3

REPORT INFORMATION
  Report Type: 
  Country: None (occurrence: None)
  Receive Date: 20120803
  Receipt Date: 20110803
  Transmission Date: 20120928
  Serious: No
  Sender: FDA-Public Use
  Company Number: US-ABBOTT-11P-163-0843646-00

PATIENT
  Sex: Male
  Weight: 78.088 kg

DRUGS (6)
  1. FISH OIL [Concomitant]
     Indication: PRODUCT USED FOR UNKNOWN INDICATION
     Dosage: 3-4 TABS DAILY
  2. MVT [Concomitant]
     Indication: PRODUCT USED FOR UNKNOWN INDICATION
     Dosage: OCCASSIONAL
  3. NIASPAN [Suspect]
     Indication: LIPIDS ABNORMAL
     Dosage: AT 500 MG TAB -FOR A BRIEF TIME
     Dates: start: 20030101
  4. ANTIANXIETY MEDICATION [Concomitant]
     Indication: PRODUCT USED FOR UNKNOWN INDICATION
  5. NIASPAN [Suspect]
     Indication: HIGH DENSITY LIPOPROTEIN DECREASED
     Dosage: REDUCED TO 500 MG X 2 AT HS
  6. ASPIRIN [Concomitant]
     Indication: PRODUCT USED FOR UNKNOWN INDICATION
     Dosage: DAILY WITH NIASPAN COATED

REACTIONS (2)
  - PRURITUS [None]
  - FLUSHING [None]
